FAERS Safety Report 4742830-2 (Version None)
Quarter: 2005Q3

REPORT INFORMATION
  Report Type: 
  Country: None (occurrence: None)
  Receive Date: 20050811
  Receipt Date: 20050805
  Transmission Date: 20060218
  Serious: Yes (Other)
  Sender: FDA-Public Use
  Company Number: JP-GLAXOSMITHKLINE-B0389882A

PATIENT
  Sex: Female

DRUGS (1)
  1. ZANTAC [Suspect]
     Dosage: 50MG PER DAY
     Route: 042
     Dates: start: 20050730, end: 20050730

REACTIONS (1)
  - SHOCK [None]
